FAERS Safety Report 20781693 (Version 2)
Quarter: 2022Q2

REPORT INFORMATION
  Report Type: Spontaneous
  Country: US (occurrence: US)
  Receive Date: 20220504
  Receipt Date: 20220505
  Transmission Date: 20220721
  Serious: Yes (Other)
  Sender: FDA-Public Use
  Company Number: US-BRISTOL-MYERS SQUIBB COMPANY-2022-027114

PATIENT
  Age: 33 Year
  Sex: Female
  Weight: 158.76 kg

DRUGS (1)
  1. KENALOG [Suspect]
     Active Substance: TRIAMCINOLONE ACETONIDE
     Indication: Cystitis
     Dosage: DOSE : UNAVAILABLE;     FREQ : TWICE A DAY

REACTIONS (2)
  - Ulcer haemorrhage [Unknown]
  - Product temperature excursion issue [Unknown]
